FAERS Safety Report 9372508 (Version 1)
Quarter: 2013Q2

REPORT INFORMATION
  Report Type: Spontaneous
  Country: IT (occurrence: None)
  Receive Date: 20130625
  Receipt Date: 20130625
  Transmission Date: 20140414
  Serious: Yes (Other)
  Sender: FDA-Public Use
  Company Number: IT-021754

PATIENT
  Age: 2 Year
  Sex: Female

DRUGS (1)
  1. TIOGUANINE [Suspect]
     Indication: ACUTE LYMPHOCYTIC LEUKAEMIA
     Route: 048
     Dates: start: 20100810, end: 20100810

REACTIONS (2)
  - Dyspnoea [None]
  - Tremor [None]
